FAERS Safety Report 13197034 (Version 1)
Quarter: 2017Q1

REPORT INFORMATION
  Report Type: Report from Study
  Country: US (occurrence: US)
  Receive Date: 20170208
  Receipt Date: 20170208
  Transmission Date: 20170428
  Serious: Yes (Other)
  Sender: FDA-Public Use
  Company Number: US-ALEXION-A201701038

PATIENT
  Sex: Female

DRUGS (1)
  1. STRENSIQ [Suspect]
     Active Substance: ASFOTASE ALFA
     Indication: HYPOPHOSPHATASIA
     Route: 058

REACTIONS (7)
  - Hypophosphatasia [Unknown]
  - Arthralgia [Unknown]
  - Joint swelling [Unknown]
  - Foot fracture [Unknown]
  - Bone pain [Unknown]
  - Fracture pain [Unknown]
  - Condition aggravated [Unknown]
